FAERS Safety Report 8533279-5 (Version None)
Quarter: 2012Q3

REPORT INFORMATION
  Report Type: 
  Country: None (occurrence: None)
  Receive Date: 20120717
  Receipt Date: 20120717
  Transmission Date: 20120928
  Serious: Yes (Other)
  Sender: FDA-Public Use
  Company Number: None

PATIENT
  Sex: Female

DRUGS (9)
  1. BRILINTA [Suspect]
     Indication: ANGIOPLASTY
     Dosage: 90 MG TWICE A DAY PO
     Route: 048
  2. GLYBURIDE [Concomitant]
  3. HYDROCHLORIZIDE [Concomitant]
  4. LEVOTHOIXN [Concomitant]
  5. ASPIRIN [Concomitant]
  6. ZETIA [Concomitant]
  7. METROLOC [Concomitant]
  8. GENUVIA [Concomitant]
  9. CRESTOR [Concomitant]

REACTIONS (3)
  - DYSPNOEA AT REST [None]
  - POOR QUALITY SLEEP [None]
  - FEELING ABNORMAL [None]
